FAERS Safety Report 19996107 (Version 2)
Quarter: 2024Q2

REPORT INFORMATION
  Report Type: Spontaneous
  Country: DK (occurrence: DK)
  Receive Date: 20211026
  Receipt Date: 20240423
  Transmission Date: 20240716
  Serious: Yes (Hospitalization)
  Sender: FDA-Public Use
  Company Number: DK-ENDO PHARMACEUTICALS INC-2021-012301

PATIENT
  Age: 66 Year
  Sex: Female

DRUGS (3)
  1. ITRACONAZOLE [Suspect]
     Active Substance: ITRACONAZOLE
     Indication: Onychomycosis
     Dosage: 100 MG, BID
     Route: 048
     Dates: start: 201909
  2. ITRACONAZOLE [Suspect]
     Active Substance: ITRACONAZOLE
     Dosage: 100 MG, DAILY
     Route: 048
     Dates: end: 202004
  3. AMOROLFINE [Suspect]
     Active Substance: AMOROLFINE
     Indication: Onychomycosis
     Dosage: UNK UNKNOWN, UNKNOWN
     Route: 065

REACTIONS (4)
  - Pseudoaldosteronism [Recovered/Resolved]
  - Onychomycosis [Unknown]
  - Disease recurrence [Unknown]
  - Intentional product use issue [Recovered/Resolved]
